FAERS Safety Report 9907055 (Version 2)
Quarter: 2014Q1

REPORT INFORMATION
  Report Type: Report from Study
  Country: DE (occurrence: DE)
  Receive Date: 20140218
  Receipt Date: 20140331
  Transmission Date: 20141002
  Serious: Yes (Disabling)
  Sender: FDA-Public Use
  Company Number: DE-ABBVIE-14P-062-1201718-00

PATIENT
  Sex: Male
  Weight: 96 kg

DRUGS (3)
  1. HUMIRA [Suspect]
     Indication: PSORIATIC ARTHROPATHY
     Route: 058
     Dates: start: 2012
  2. METHOTREXATE [Concomitant]
     Indication: PSORIATIC ARTHROPATHY
     Dates: end: 201311
  3. DAIVOBET [Concomitant]
     Indication: PSORIATIC ARTHROPATHY

REACTIONS (3)
  - Type 2 diabetes mellitus [Not Recovered/Not Resolved]
  - Nasopharyngitis [Recovered/Resolved]
  - Abscess [Unknown]
